FAERS Safety Report 16399252 (Version 1)
Quarter: 2019Q2

REPORT INFORMATION
  Report Type: Spontaneous
  Country: US (occurrence: US)
  Receive Date: 20190606
  Receipt Date: 20190606
  Transmission Date: 20190711
  Serious: Yes (Hospitalization)
  Sender: FDA-Public Use
  Company Number: US-PFIZER INC-2019226425

PATIENT
  Age: 20 Month
  Sex: Male
  Weight: 10 kg

DRUGS (6)
  1. FLECAINIDE [Concomitant]
     Active Substance: FLECAINIDE
     Indication: TACHYCARDIA
     Dosage: UNK
  2. PROPAFENONE. [Suspect]
     Active Substance: PROPAFENONE
     Indication: TACHYCARDIA
     Dosage: 500 MG/M2, DAILY (DIVIDED IN 4 DOSES)
  3. SOTALOL. [Concomitant]
     Active Substance: SOTALOL
     Dosage: 40 MG/M2, DAILY
  4. AMIODARONE HCL [Suspect]
     Active Substance: AMIODARONE HYDROCHLORIDE
     Indication: TACHYCARDIA
     Dosage: 4 MG/KG, DAILY (DIVIDED IN 4 DOSES)
  5. SOTALOL. [Concomitant]
     Active Substance: SOTALOL
     Indication: TACHYCARDIA
     Dosage: UNK
  6. ATENOLOL. [Concomitant]
     Active Substance: ATENOLOL
     Indication: TACHYCARDIA
     Dosage: UNK

REACTIONS (4)
  - Product use issue [Unknown]
  - Toxicity to various agents [Recovered/Resolved]
  - Neurotoxicity [Recovered/Resolved]
  - Off label use [Unknown]
